FAERS Safety Report 4970051-7 (Version None)
Quarter: 2006Q2

REPORT INFORMATION
  Report Type: 
  Country: None (occurrence: None)
  Receive Date: 20060406
  Receipt Date: 20060330
  Transmission Date: 20061013
  Serious: Yes (Other)
  Sender: FDA-Public Use
  Company Number: 200603447

PATIENT
  Age: 32 Year
  Sex: Male
  Weight: 92.5338 kg

DRUGS (1)
  1. BOTOX [Suspect]
     Indication: BLEPHAROSPASM

REACTIONS (10)
  - CAPILLARY DISORDER [None]
  - DACRYOCANALICULITIS INFECTIVE [None]
  - ERYTHEMA [None]
  - EYELID PTOSIS [None]
  - INFLAMMATION [None]
  - IRRITABILITY [None]
  - LUNG DISORDER [None]
  - RESPIRATORY DISORDER [None]
  - SWELLING [None]
  - VISION BLURRED [None]
